FAERS Safety Report 9053833 (Version 1)
Quarter: 2013Q1

REPORT INFORMATION
  Report Type: Spontaneous
  Country: FR (occurrence: FR)
  Receive Date: 20130207
  Receipt Date: 20130207
  Transmission Date: 20140127
  Serious: Yes (Hospitalization)
  Sender: FDA-Public Use
  Company Number: FR-VIIV HEALTHCARE LIMITED-B0863453A

PATIENT
  Age: 53 None
  Sex: Male

DRUGS (10)
  1. KIVEXA [Suspect]
     Indication: HIV INFECTION
     Route: 048
     Dates: start: 20120314, end: 20121206
  2. NORVIR [Suspect]
     Indication: HIV INFECTION
     Route: 065
     Dates: start: 201010, end: 20121206
  3. PREZISTA [Suspect]
     Indication: HIV INFECTION
     Route: 065
     Dates: start: 201010, end: 20121206
  4. SOLUMEDROL [Concomitant]
     Dates: start: 20121008
  5. CORTANCYL [Concomitant]
     Dosage: 50MG PER DAY
     Dates: start: 20121008
  6. CALCIPARINE [Concomitant]
     Indication: COAGULOPATHY
     Dosage: .2ML TWICE PER DAY
     Dates: start: 20121008
  7. CRESTOR [Concomitant]
     Indication: PRODUCT USED FOR UNKNOWN INDICATION
     Dates: end: 20121128
  8. SEROPLEX [Concomitant]
     Indication: PRODUCT USED FOR UNKNOWN INDICATION
     Dates: end: 20121128
  9. BACTRIM [Concomitant]
     Indication: PRODUCT USED FOR UNKNOWN INDICATION
     Dates: end: 20121128
  10. VALGANCYCLOVIR [Concomitant]
     Indication: PRODUCT USED FOR UNKNOWN INDICATION
     Dates: end: 20121128

REACTIONS (4)
  - Hepatocellular injury [Recovering/Resolving]
  - Gamma-glutamyltransferase increased [Recovering/Resolving]
  - Cholelithiasis [Unknown]
  - Smooth muscle antibody positive [Unknown]
